FAERS Safety Report 25521899 (Version 2)
Quarter: 2025Q3

REPORT INFORMATION
  Report Type: Report from Study
  Country: US (occurrence: US)
  Receive Date: 20250706
  Receipt Date: 20250708
  Transmission Date: 20251020
  Serious: No
  Sender: ABBVIE
  Company Number: US-ABBVIE-6355462

PATIENT
  Age: 71 Year
  Sex: Male

DRUGS (1)
  1. IMBRUVICA [Suspect]
     Active Substance: IBRUTINIB
     Indication: Chronic lymphocytic leukaemia
     Route: 048
     Dates: start: 20250109

REACTIONS (1)
  - Rash macular [Unknown]

NARRATIVE: CASE EVENT DATE: 20250101
